FAERS Safety Report 5737260-0 (Version None)
Quarter: 2008Q2

REPORT INFORMATION
  Report Type: 
  Country: None (occurrence: None)
  Receive Date: 20080512
  Receipt Date: 20080512
  Transmission Date: 20081010
  Serious: Yes (Life-Threatening, Hospitalization)
  Sender: FDA-Public Use
  Company Number: None

PATIENT
  Age: 46 Year
  Sex: Male
  Weight: 64.4108 kg

DRUGS (1)
  1. DIGITEK .25 MG BERTEK [Suspect]
     Indication: CARDIAC FAILURE CONGESTIVE
     Dosage: .25 MG ONCE DAILY PO
     Route: 048
     Dates: start: 20080410, end: 20080420

REACTIONS (7)
  - DIZZINESS [None]
  - HEART RATE DECREASED [None]
  - HYPOTENSION [None]
  - METAMORPHOPSIA [None]
  - NAUSEA [None]
  - PHARMACEUTICAL PRODUCT COMPLAINT [None]
  - VISION BLURRED [None]
